FAERS Safety Report 6124905-9 (Version None)
Quarter: 2009Q1

REPORT INFORMATION
  Report Type: 
  Country: None (occurrence: None)
  Receive Date: 20090319
  Receipt Date: 20090317
  Transmission Date: 20090719
  Serious: Yes (Hospitalization)
  Sender: FDA-Public Use
  Company Number: HK-ROXANE LABORATORIES, INC.-2009-RO-00253RO

PATIENT
  Age: 29 Year
  Sex: Female

DRUGS (7)
  1. LIDOCAINE [Suspect]
     Indication: DYSPEPSIA
     Dosage: 3G
     Route: 048
     Dates: start: 20061201
  2. DOXYCYCLINE [Suspect]
     Indication: ACNE
  3. MUCIN [Suspect]
     Indication: DYSPEPSIA
     Route: 048
     Dates: start: 20061201
  4. OXYGEN [Concomitant]
  5. DIAZEPAM [Concomitant]
     Indication: CONVULSION
     Route: 042
  6. PROPOFOL [Concomitant]
     Indication: CONVULSION
  7. ACTIVATED CHARCOAL [Concomitant]

REACTIONS (9)
  - AGITATION [None]
  - CONFUSIONAL STATE [None]
  - CONVULSION [None]
  - DIZZINESS [None]
  - DRUG TOXICITY [None]
  - MUSCLE SPASMS [None]
  - MUSCLE TWITCHING [None]
  - SINUS TACHYCARDIA [None]
  - SPEECH DISORDER [None]
